FAERS Safety Report 4461014-9 (Version None)
Quarter: 2004Q3

REPORT INFORMATION
  Report Type: 
  Country: None (occurrence: None)
  Receive Date: 20040923
  Receipt Date: 20040916
  Transmission Date: 20050211
  Serious: Yes (Hospitalization, Disabling)
  Sender: FDA-Public Use
  Company Number: HQ0081023JAN2002

PATIENT
  Age: 55 Year
  Sex: Female

DRUGS (9)
  1. DIMETAPP [Suspect]
     Dosage: ORAL
     Route: 048
  2. ALKA-SELTZER PLUS COLD (ACETYLSALICYLIC ACID/CHLORPHENAMINE MALEATE/PH [Suspect]
     Dosage: ORAL
     Route: 048
  3. BC (ACETYLSALICYLIC ACID/CAFFEINE/SALICYLAMIDE, POWDER0 [Suspect]
     Dosage: ORAL
     Route: 048
  4. CONTAC [Suspect]
     Dosage: ORAL
     Route: 048
  5. CORICIDIN [Suspect]
     Dosage: ORAL
     Route: 048
  6. NALDECON (CARBINOXAMINE MALEATE/PHENYLEPHRINE HYDROCHLORIDE/PHENYLPROP [Suspect]
     Dosage: ORAL
     Route: 048
  7. ROBITUSSIN CF 9GUAIFENESIN/DEXTROMETHORPHAN/PHENYLPROPANOLAMINE, SYRUP [Suspect]
     Dosage: ORAL
     Route: 048
  8. TAVIST D [Suspect]
     Dosage: ORAL
     Route: 048
  9. TRIAMINIC-12 [Suspect]
     Dosage: ORAL
     Route: 048

REACTIONS (4)
  - CEREBROVASCULAR ACCIDENT [None]
  - HAEMORRHAGIC STROKE [None]
  - INTRACRANIAL ANEURYSM [None]
  - TRANSIENT ISCHAEMIC ATTACK [None]
